FAERS Safety Report 8405315-8 (Version None)
Quarter: 2012Q2

REPORT INFORMATION
  Report Type: 
  Country: None (occurrence: None)
  Receive Date: 20120604
  Receipt Date: 20120530
  Transmission Date: 20120825
  Serious: Yes (Hospitalization)
  Sender: FDA-Public Use
  Company Number: DE-AMGEN-DEUSP2012032039

PATIENT
  Sex: Female

DRUGS (17)
  1. CYCLOPHOSPHAMIDE [Suspect]
     Indication: B-CELL LYMPHOMA
     Dosage: 1483 MG, Q2WK
     Route: 042
     Dates: start: 20120426
  2. DOXORUBICIN HCL [Suspect]
     Indication: B-CELL LYMPHOMA
     Dosage: 100 MG, Q2WK
     Route: 042
     Dates: start: 20120426
  3. PREDNISOLONE [Suspect]
     Indication: B-CELL LYMPHOMA
     Dosage: 100 MG, UNK
     Dates: start: 20120426
  4. NEBIVOLOL [Concomitant]
     Dosage: 5 MG, QD
     Dates: start: 20120412
  5. VINCRISTINE [Suspect]
     Indication: B-CELL LYMPHOMA
     Dosage: 3.94 MG, Q2WK
     Route: 042
     Dates: start: 20120426
  6. TORSEMIDE [Concomitant]
     Dosage: 10 MG, UNK
     Dates: start: 20120412
  7. TIOTROPIUM BROMIDE [Concomitant]
     Dosage: 18 MUG, QD
     Dates: start: 20120412
  8. ENOXAPARIN SODIUM [Concomitant]
     Indication: PROPHYLAXIS
     Dosage: 0.9 ML, BID
     Dates: start: 20120412
  9. TRIMETHOPRIM + SULFAMETHOXAZOLE [Concomitant]
     Dosage: 960 MG, 2 TIMES/WK
     Dates: start: 20120412
  10. PANTOPRAZOLE [Concomitant]
     Dosage: UNK
     Dates: start: 20120412
  11. NEULASTA [Suspect]
     Indication: B-CELL LYMPHOMA
     Dosage: UNK
     Route: 058
     Dates: start: 20120429
  12. SIMVASTATIN [Concomitant]
     Dosage: 20 MG, UNK
     Dates: start: 20120412
  13. ACETYLSALICYLIC ACID SRT [Concomitant]
     Dosage: 100 MG, UNK
     Dates: start: 20120412
  14. RAMIPRIL [Concomitant]
     Dosage: 5 MG, QD
     Dates: start: 20120412
  15. ACYCLOVIR [Concomitant]
     Dosage: 400 MG, QID
     Dates: start: 20120412
  16. RITUXIMAB [Suspect]
     Indication: B-CELL LYMPHOMA
     Dosage: 742.5 MG, Q2WK
     Route: 042
     Dates: start: 20120425
  17. LEVOTHYROXINE SODIUM [Concomitant]
     Dosage: 100 MUG, QD
     Dates: start: 20120412

REACTIONS (2)
  - THROMBOCYTOPENIA [None]
  - SYNCOPE [None]
